FAERS Safety Report 17599638 (Version 2)
Quarter: 2020Q3

REPORT INFORMATION
  Report Type: Spontaneous
  Country: JP (occurrence: JP)
  Receive Date: 20200330
  Receipt Date: 20200825
  Transmission Date: 20201102
  Serious: Yes (Other)
  Sender: FDA-Public Use
  Company Number: JP-009507513-1912JPN003026J

PATIENT
  Age: 72 Year
  Sex: Male
  Weight: 49 kg

DRUGS (12)
  1. KEYTRUDA [Suspect]
     Active Substance: PEMBROLIZUMAB
     Indication: TRANSITIONAL CELL CARCINOMA
     Dosage: 200 MILLIGRAM, Q3W
     Route: 041
     Dates: start: 20191023, end: 20191023
  2. OXYCODONE [Concomitant]
     Active Substance: OXYCODONE
     Indication: GENERAL SYMPTOM
     Dosage: 10 MILLIGRAM, BID
     Route: 048
  3. BROTIZOLAM OD [Concomitant]
     Active Substance: BROTIZOLAM
     Indication: GENERAL SYMPTOM
     Dosage: 0.25 MILLIGRAM, QD
     Route: 048
  4. IRBESARTAN. [Concomitant]
     Active Substance: IRBESARTAN
     Indication: HYPERTENSION
     Dosage: 50 MILLIGRAM, QD
     Route: 048
  5. GEMCITABINE. [Concomitant]
     Active Substance: GEMCITABINE
     Dosage: UNK
     Route: 065
  6. CYTOTEC [Concomitant]
     Active Substance: MISOPROSTOL
     Indication: GENERAL SYMPTOM
     Dosage: 800 MICROGRAM, QD
     Route: 048
  7. AMLODIPINE [Concomitant]
     Active Substance: AMLODIPINE BESYLATE
     Indication: HYPERTENSION
     Dosage: 5 MILLIGRAM, QD
     Route: 048
  8. GASLON [Concomitant]
     Active Substance: IRSOGLADINE MALEATE
     Indication: GENERAL SYMPTOM
     Dosage: 4 MILLIGRAM, BID
     Route: 048
     Dates: start: 20190323
  9. NAIXAN [Concomitant]
     Active Substance: NAPROXEN SODIUM
     Indication: GENERAL SYMPTOM
     Dosage: 300 MILLIGRAM, TID
     Route: 048
  10. PACLITAXEL. [Concomitant]
     Active Substance: PACLITAXEL
     Dosage: UNK
     Route: 065
  11. CELECOX [Concomitant]
     Active Substance: CELECOXIB
     Indication: GENERAL SYMPTOM
     Dosage: 200 MILLIGRAM, BID
     Route: 048
  12. LYRICA [Concomitant]
     Active Substance: PREGABALIN
     Indication: GENERAL SYMPTOM
     Dosage: 150 MILLIGRAM, BID
     Route: 048

REACTIONS (6)
  - Thrombocytopenia [Recovered/Resolved]
  - White blood cell count decreased [Recovered/Resolved]
  - Drug-induced liver injury [Recovering/Resolving]
  - Neutropenia [Recovered/Resolved]
  - Anaemia [Recovered/Resolved]
  - Blood uric acid increased [Recovered/Resolved]

NARRATIVE: CASE EVENT DATE: 20191030
